FAERS Safety Report 9148222 (Version 1)
Quarter: 2013Q1

REPORT INFORMATION
  Report Type: Spontaneous
  Country: DE (occurrence: DE)
  Receive Date: 20130308
  Receipt Date: 20130308
  Transmission Date: 20140127
  Serious: Yes (Hospitalization)
  Sender: FDA-Public Use
  Company Number: DE-BRISTOL-MYERS SQUIBB COMPANY-17432279

PATIENT
  Age: 83 Year
  Sex: Male
  Weight: 55 kg

DRUGS (6)
  1. ELIQUIS [Suspect]
     Indication: ATRIAL FIBRILLATION
     Dosage: FILM COATED TABS
     Route: 048
  2. LEVOTHYROXINE SODIUM+POTASSIUM IODIDE [Concomitant]
  3. TOREM [Concomitant]
  4. DELIX [Concomitant]
  5. BISOHEXAL [Concomitant]
  6. DEXAMETHASONE [Concomitant]

REACTIONS (1)
  - Dermatitis allergic [Recovered/Resolved]
